FAERS Safety Report 13431216 (Version 1)
Quarter: 2017Q2

REPORT INFORMATION
  Report Type: Spontaneous
  Country: CA (occurrence: CA)
  Receive Date: 20170412
  Receipt Date: 20170412
  Transmission Date: 20170830
  Serious: Yes (Hospitalization, Other)
  Sender: FDA-Public Use
  Company Number: CA-PFIZER INC-2017155836

PATIENT

DRUGS (1)
  1. OXALIPLATIN. [Suspect]
     Active Substance: OXALIPLATIN
     Dosage: UNK

REACTIONS (6)
  - Hypotension [Unknown]
  - Tremor [Unknown]
  - Movement disorder [Unknown]
  - Muscular weakness [Unknown]
  - Diplopia [Unknown]
  - Hemiparesis [Unknown]
